FAERS Safety Report 8907060 (Version 1)
Quarter: 2012Q4

REPORT INFORMATION
  Report Type: 
  Country: FR (occurrence: FR)
  Receive Date: 20121114
  Receipt Date: 20121114
  Transmission Date: 20130627
  Serious: Yes (Hospitalization)
  Sender: FDA-Public Use
  Company Number: FR-NAPPMUNDI-GBR-2012-0012060

PATIENT
  Age: 63 Year
  Sex: Male

DRUGS (3)
  1. SEVREDOL [Suspect]
     Indication: PREMEDICATION
     Dosage: 1 DF, daily
     Route: 048
     Dates: start: 20120911, end: 20120911
  2. XANAX [Concomitant]
     Route: 048
  3. ATARAX                             /00058401/ [Concomitant]
     Route: 048

REACTIONS (3)
  - Abdominal pain [Recovering/Resolving]
  - Biliary dilatation [Recovering/Resolving]
  - Lipase increased [Recovered/Resolved]
